FAERS Safety Report 9415885 (Version 1)
Quarter: 2013Q3

REPORT INFORMATION
  Report Type: Spontaneous
  Country: AU (occurrence: AU)
  Receive Date: 20130724
  Receipt Date: 20130724
  Transmission Date: 20140515
  Serious: Yes (Hospitalization)
  Sender: FDA-Public Use
  Company Number: AU-009507513-1307AUS007972

PATIENT
  Age: 2 Year
  Sex: Female
  Weight: 15 kg

DRUGS (3)
  1. LORATADINE [Suspect]
     Route: 048
  2. LORAZEPAM [Suspect]
  3. ERYTHROMYCIN [Suspect]

REACTIONS (1)
  - Accidental exposure to product by child [Unknown]
